FAERS Safety Report 12729858 (Version 1)
Quarter: 2016Q3

REPORT INFORMATION
  Report Type: Spontaneous
  Country: JP (occurrence: JP)
  Receive Date: 20160909
  Receipt Date: 20160909
  Transmission Date: 20161109
  Serious: Yes (Death)
  Sender: FDA-Public Use
  Company Number: JP-009507513-1608JPN012617

PATIENT
  Age: 85 Year
  Sex: Male
  Weight: 59 kg

DRUGS (3)
  1. WARFARIN POTASSIUM [Suspect]
     Active Substance: WARFARIN POTASSIUM
     Dosage: 1 MG, QD, FORMULATION: POR (PERORAL PREPARATION IN UNKNOWN DOSAGE FORMS)
     Route: 048
     Dates: end: 20160817
  2. WARFARIN POTASSIUM [Suspect]
     Active Substance: WARFARIN POTASSIUM
     Dosage: 1.25 MG, QD, FORMULATION: POR (PERORAL PREPARATION IN UNKNOWN DOSAGE FORMS)
     Route: 048
     Dates: start: 20160818, end: 20160820
  3. CUBICIN [Suspect]
     Active Substance: DAPTOMYCIN
     Indication: BACTERAEMIA
     Dosage: 6 MG/KG, QD
     Route: 041
     Dates: start: 20160725, end: 20160820

REACTIONS (2)
  - Disease progression [Fatal]
  - International normalised ratio increased [Recovered/Resolved]

NARRATIVE: CASE EVENT DATE: 20160818
